FAERS Safety Report 8440856 (Version 3)
Quarter: 2013Q3

REPORT INFORMATION
  Report Type: Spontaneous
  Country: US (occurrence: US)
  Receive Date: 20120305
  Receipt Date: 20130830
  Transmission Date: 20140515
  Serious: Yes (Hospitalization, Other)
  Sender: FDA-Public Use
  Company Number: US-ROCHE-793982

PATIENT
  Age: 23 Year
  Sex: Female
  Weight: 65.83 kg

DRUGS (2)
  1. ACCUTANE [Suspect]
     Indication: ACNE
     Dosage: EARLY 1980S
     Route: 065
  2. ACCUTANE [Suspect]
     Route: 065
     Dates: start: 19821028, end: 19830321

REACTIONS (7)
  - Colitis ulcerative [Unknown]
  - Crohn^s disease [Unknown]
  - Inflammatory bowel disease [Unknown]
  - Depression [Unknown]
  - Irritable bowel syndrome [Unknown]
  - Lip dry [Unknown]
  - Dry skin [Unknown]
